FAERS Safety Report 13255577 (Version 1)
Quarter: 2017Q1

REPORT INFORMATION
  Report Type: Spontaneous
  Country: US (occurrence: US)
  Receive Date: 20170218
  Receipt Date: 20170218
  Transmission Date: 20170428
  Serious: Yes (Disabling)
  Sender: FDA-Public Use
  Company Number: None

PATIENT
  Age: 9 Month
  Sex: Female
  Weight: 13.05 kg

DRUGS (1)
  1. POLYETHYLENE GLYCOL [Suspect]
     Active Substance: POLYETHYLENE GLYCOLS
     Indication: GASTROINTESTINAL DISORDER
     Route: 048
     Dates: start: 20140901, end: 20170217

REACTIONS (2)
  - Sensory processing disorder [None]
  - Abnormal behaviour [None]

NARRATIVE: CASE EVENT DATE: 20141201
